FAERS Safety Report 13619689 (Version 1)
Quarter: 2017Q2

REPORT INFORMATION
  Report Type: Spontaneous
  Country: US (occurrence: US)
  Receive Date: 20170606
  Receipt Date: 20170606
  Transmission Date: 20170830
  Serious: Yes (Other)
  Sender: FDA-Public Use
  Company Number: None

PATIENT
  Age: 75 Year
  Sex: Female

DRUGS (7)
  1. VIMPAT [Concomitant]
     Active Substance: LACOSAMIDE
  2. FUROSEMIDE. [Concomitant]
     Active Substance: FUROSEMIDE
  3. LONSURF [Suspect]
     Active Substance: TIPIRACIL HYDROCHLORIDE\TRIFLURIDINE
     Indication: RECTAL CANCER
     Route: 048
     Dates: start: 20170511
  4. LIDOCAINE. [Concomitant]
     Active Substance: LIDOCAINE
  5. GELCLAIR [Concomitant]
  6. PROCHLORPER [Concomitant]
  7. LEVOTHYROXIN [Concomitant]
     Active Substance: LEVOTHYROXINE

REACTIONS (5)
  - Haematochezia [None]
  - Red blood cell count decreased [None]
  - White blood cell count decreased [None]
  - Blood urine present [None]
  - Platelet count decreased [None]

NARRATIVE: CASE EVENT DATE: 2017
